FAERS Safety Report 24615148 (Version 2)
Quarter: 2024Q4

REPORT INFORMATION
  Report Type: Report from Study
  Country: US (occurrence: US)
  Receive Date: 20241113
  Receipt Date: 20241218
  Transmission Date: 20250114
  Serious: Yes (Hospitalization)
  Sender: BAYER HEALTHCARE PHARMACEUTICALS INC.
  Company Number: US-BAYER-2024A160986

PATIENT
  Age: 74 Year
  Sex: Female
  Weight: 51.701 kg

DRUGS (20)
  1. ADEMPAS [Suspect]
     Active Substance: RIOCIGUAT
     Indication: Pulmonary arterial hypertension
     Dosage: UNK
     Dates: start: 20240209
  2. ADEMPAS [Suspect]
     Active Substance: RIOCIGUAT
     Indication: Pulmonary arterial hypertension
     Dosage: 2.5 MG, TID
     Route: 048
  3. REMODULIN [Suspect]
     Active Substance: TREPROSTINIL
  4. ATORVASTATIN CALCIUM [Concomitant]
     Active Substance: ATORVASTATIN CALCIUM
  5. CVS COENZYME Q 10 [Concomitant]
  6. POTASSIUM CHLORIDE [Concomitant]
     Active Substance: POTASSIUM CHLORIDE
  7. PENICILLIN G POTASSIUM [Concomitant]
     Active Substance: PENICILLIN G POTASSIUM
  8. OPSUMIT [Concomitant]
     Active Substance: MACITENTAN
  9. LASIX [Concomitant]
     Active Substance: FUROSEMIDE
  10. MAGNESIUM [Concomitant]
     Active Substance: MAGNESIUM
  11. PFIZER-BIONTECH COVID-19 VACCINE [Concomitant]
     Active Substance: TOZINAMERAN
  12. FISH OIL [Concomitant]
     Active Substance: FISH OIL
  13. IRON [Concomitant]
     Active Substance: IRON
  14. WINREVAIR [Concomitant]
     Active Substance: SOTATERCEPT-CSRK
  15. LINEZOLID [Concomitant]
     Active Substance: LINEZOLID
  16. HERBALS\TURMERIC [Concomitant]
     Active Substance: HERBALS\TURMERIC
  17. ASPIRIN [Concomitant]
     Active Substance: ASPIRIN
  18. VITAMIN D3 [Concomitant]
     Active Substance: CHOLECALCIFEROL
  19. OMEPRAZOLE [Concomitant]
     Active Substance: OMEPRAZOLE
  20. GLUCOSAMINE [Concomitant]
     Active Substance: GLUCOSAMINE

REACTIONS (6)
  - Dehydration [None]
  - Gastrointestinal pain [None]
  - Asthenia [None]
  - Infusion site reaction [None]
  - Infusion site inflammation [None]
  - Infusion site infection [None]

NARRATIVE: CASE EVENT DATE: 20240101
